FAERS Safety Report 7941083-1 (Version None)
Quarter: 2011Q4

REPORT INFORMATION
  Report Type: 
  Country: None (occurrence: None)
  Receive Date: 20111128
  Receipt Date: 20111116
  Transmission Date: 20120403
  Serious: Yes (Hospitalization)
  Sender: FDA-Public Use
  Company Number: DE-ELI_LILLY_AND_COMPANY-DE201111005279

PATIENT
  Age: 84 Year
  Sex: Female

DRUGS (5)
  1. ACCUZIDE [Concomitant]
  2. ACETAMINOPHEN [Concomitant]
  3. FORTEO [Suspect]
     Indication: OSTEOPOROSIS
     Dosage: UNK, QD
     Route: 058
     Dates: start: 20100212, end: 20110830
  4. MAGNESIUM SULFATE [Concomitant]
  5. ISOPTIN [Concomitant]

REACTIONS (2)
  - JOINT INJURY [None]
  - FALL [None]
